FAERS Safety Report 5051079-8 (Version None)
Quarter: 2006Q3

REPORT INFORMATION
  Report Type: 
  Country: None (occurrence: None)
  Receive Date: 20060714
  Receipt Date: 20060710
  Transmission Date: 20061208
  Serious: Yes (Hospitalization)
  Sender: FDA-Public Use
  Company Number: PHRM2006FR02018

PATIENT
  Age: 38 Year
  Sex: Female

DRUGS (1)
  1. TEGRETOL [Suspect]
     Dosage: 500 MG, QD
     Route: 048
     Dates: start: 20060414, end: 20060504

REACTIONS (7)
  - GENITAL PRURITUS FEMALE [None]
  - GENITAL ULCERATION [None]
  - LACTOBACILLUS INFECTION [None]
  - MOUTH ULCERATION [None]
  - RASH ERYTHEMATOUS [None]
  - RASH MACULOVESICULAR [None]
  - TOXIC SKIN ERUPTION [None]
